FAERS Safety Report 17906673 (Version 1)
Quarter: 2020Q2

REPORT INFORMATION
  Report Type: Spontaneous
  Country: US (occurrence: US)
  Receive Date: 20200616
  Receipt Date: 20200616
  Transmission Date: 20200714
  Serious: Yes (Hospitalization)
  Sender: FDA-Public Use
  Company Number: None

PATIENT
  Age: 37 Year
  Sex: Female

DRUGS (1)
  1. CAPECITABINE. [Suspect]
     Active Substance: CAPECITABINE
     Indication: NEOPLASM MALIGNANT
     Route: 048

REACTIONS (6)
  - Chest pain [None]
  - Blood folate increased [None]
  - Myocardial necrosis marker increased [None]
  - Cardiotoxicity [None]
  - Cardiac output decreased [None]
  - Acute left ventricular failure [None]
